FAERS Safety Report 10936249 (Version 1)
Quarter: 2015Q1

REPORT INFORMATION
  Report Type: Spontaneous
  Country: US (occurrence: None)
  Receive Date: 20150319
  Receipt Date: 20150319
  Transmission Date: 20150721
  Serious: Yes (Life-Threatening, Disabling, Other)
  Sender: FDA-Public Use
  Company Number: None

PATIENT
  Age: 82 Year
  Sex: Male
  Weight: 77.11 kg

DRUGS (10)
  1. OXYGEN. [Concomitant]
     Active Substance: OXYGEN
  2. COLONIZPRAM [Concomitant]
  3. ADVAIR HFA [Concomitant]
     Active Substance: FLUTICASONE PROPIONATE\SALMETEROL XINAFOATE
  4. MIRAPEX ER [Suspect]
     Active Substance: PRAMIPEXOLE DIHYDROCHLORIDE
     Indication: TREMOR
     Route: 048
     Dates: start: 20140619, end: 20141112
  5. ALLPRAZOLAM [Concomitant]
  6. ZETIA [Concomitant]
     Active Substance: EZETIMIBE
  7. LISONAPRIL [Concomitant]
  8. VITAMIN D [Concomitant]
     Active Substance: CHOLECALCIFEROL
  9. CITALOPRAM [Concomitant]
     Active Substance: CITALOPRAM HYDROBROMIDE
  10. VITAMIN C [Concomitant]
     Active Substance: ASCORBIC ACID

REACTIONS (4)
  - Hallucination [None]
  - Basal cell carcinoma [None]
  - Keratoacanthoma [None]
  - Squamous cell carcinoma of skin [None]

NARRATIVE: CASE EVENT DATE: 201410
